FAERS Safety Report 5446999-6 (Version None)
Quarter: 2007Q3

REPORT INFORMATION
  Report Type: 
  Country: None (occurrence: None)
  Receive Date: 20070810
  Receipt Date: 20070226
  Transmission Date: 20080115
  Serious: Yes (Other)
  Sender: FDA-Public Use
  Company Number: A03200701656

PATIENT
  Age: 67 Year
  Sex: Male

DRUGS (3)
  1. UROXATRAL [Suspect]
     Indication: BENIGN PROSTATIC HYPERPLASIA
     Dosage: ORAL
     Route: 048
     Dates: start: 20070116, end: 20070116
  2. LEVOTHYROXINE SODIUM [Concomitant]
  3. OMEPRAZOLE [Concomitant]

REACTIONS (1)
  - HYPOTENSION [None]
